FAERS Safety Report 4907774-1 (Version None)
Quarter: 2006Q1

REPORT INFORMATION
  Report Type: 
  Country: None (occurrence: None)
  Receive Date: 20060208
  Receipt Date: 20060208
  Transmission Date: 20060701
  Serious: Yes (Hospitalization)
  Sender: FDA-Public Use
  Company Number: None

PATIENT
  Age: 72 Year
  Sex: Male

DRUGS (9)
  1. GLYBURIDE [Suspect]
     Indication: DIABETES MELLITUS NON-INSULIN-DEPENDENT
     Dosage: 5 MG BID
     Dates: start: 20050821
  2. PIROXICAM [Concomitant]
  3. METOPROLOL [Concomitant]
  4. ZIPRASIDONE HCL [Concomitant]
  5. MIRTAZADINE [Concomitant]
  6. HYDROCORTISONE [Concomitant]
  7. ESCITALOPRAM OXALATE [Concomitant]
  8. OMEPRAZOLE [Concomitant]
  9. LORATADINE [Concomitant]

REACTIONS (2)
  - CONFUSIONAL STATE [None]
  - LOSS OF CONSCIOUSNESS [None]
